FAERS Safety Report 18379416 (Version 2)
Quarter: 2022Q2

REPORT INFORMATION
  Report Type: Spontaneous
  Country: US (occurrence: US)
  Receive Date: 20201014
  Receipt Date: 20220608
  Transmission Date: 20220720
  Serious: Yes (Other)
  Sender: FDA-Public Use
  Company Number: US-SAARTEMIS-SAC202010090661

PATIENT
  Age: 71 Year
  Sex: Male

DRUGS (1)
  1. ZANTAC [Suspect]
     Active Substance: RANITIDINE HYDROCHLORIDE
     Indication: Dyspepsia
     Dosage: UNK, QD
     Route: 065
     Dates: start: 199001, end: 200901

REACTIONS (3)
  - Colorectal cancer stage I [Not Recovered/Not Resolved]
  - Prostate cancer stage II [Recovering/Resolving]
  - Prostatic disorder [Unknown]

NARRATIVE: CASE EVENT DATE: 20090101
